FAERS Safety Report 8836194 (Version 29)
Quarter: 2020Q1

REPORT INFORMATION
  Report Type: Report from Study
  Country: CA (occurrence: CA)
  Receive Date: 20121011
  Receipt Date: 20200117
  Transmission Date: 20200409
  Serious: Yes (Other)
  Sender: FDA-Public Use
  Company Number: CA-ROCHE-1130266

PATIENT
  Age: 54 Year
  Sex: Female
  Weight: 124 kg

DRUGS (16)
  1. ACTEMRA [Suspect]
     Active Substance: TOCILIZUMAB
     Indication: RHEUMATOID ARTHRITIS
     Dosage: DATE OF LAST DOSE PRIOR TO SAE: 20/JUN/2012, LAST DOSE RECEIVED ON 15/JAN/2013
     Route: 042
     Dates: start: 20110407
  2. ACTEMRA [Suspect]
     Active Substance: TOCILIZUMAB
     Route: 042
     Dates: start: 20180606
  3. OMEGA 3 [DOCOSAHEXAENOIC ACID;EICOSAPENTAENOIC ACID] [Concomitant]
     Active Substance: DOCONEXENT\ICOSAPENT
  4. MAGNESIUM [Concomitant]
     Active Substance: MAGNESIUM
  5. DICLOFENAC [Concomitant]
     Active Substance: DICLOFENAC
  6. HYDROXYCHLOROQUINE [Concomitant]
     Active Substance: HYDROXYCHLOROQUINE
  7. AMITRIPTYLINE [Concomitant]
     Active Substance: AMITRIPTYLINE
  8. RITUXAN [Suspect]
     Active Substance: RITUXIMAB
     Indication: RHEUMATOID ARTHRITIS
     Route: 042
     Dates: start: 20091222, end: 20100119
  9. METHOTREXATE. [Concomitant]
     Active Substance: METHOTREXATE
     Route: 065
     Dates: start: 201306
  10. CALCIUM [Concomitant]
     Active Substance: CALCIUM
  11. ATORVASTATIN CALCIUM. [Concomitant]
     Active Substance: ATORVASTATIN CALCIUM
     Route: 065
  12. DIPHENHYDRAMINE. [Concomitant]
     Active Substance: DIPHENHYDRAMINE
  13. VITAMIN C [Concomitant]
     Active Substance: ASCORBIC ACID
  14. PREDNISONE. [Concomitant]
     Active Substance: PREDNISONE
  15. MEDROL [Concomitant]
     Active Substance: METHYLPREDNISOLONE
     Route: 030
     Dates: start: 20120914, end: 20121214
  16. GOLD [Concomitant]
     Active Substance: GOLD

REACTIONS (25)
  - Erythema [Unknown]
  - Blood pressure diastolic abnormal [Unknown]
  - Lacrimation increased [Recovered/Resolved]
  - Increased tendency to bruise [Not Recovered/Not Resolved]
  - Infusion related reaction [Recovered/Resolved]
  - Pain [Unknown]
  - Blood pressure systolic abnormal [Unknown]
  - Weight increased [Not Recovered/Not Resolved]
  - Heart rate increased [Recovered/Resolved]
  - Arthralgia [Unknown]
  - Rheumatoid arthritis [Recovering/Resolving]
  - Throat irritation [Recovered/Resolved]
  - Ear infection [Recovering/Resolving]
  - Blood pressure increased [Unknown]
  - Blood pressure increased [Unknown]
  - Urticaria [Recovered/Resolved]
  - Weight decreased [Unknown]
  - Rheumatoid arthritis [Not Recovered/Not Resolved]
  - Heart rate increased [Unknown]
  - Blood pressure fluctuation [Unknown]
  - Infusion related reaction [Unknown]
  - Drug ineffective [Unknown]
  - Pain [Not Recovered/Not Resolved]
  - Joint swelling [Not Recovered/Not Resolved]
  - Drug hypersensitivity [Unknown]

NARRATIVE: CASE EVENT DATE: 2012
